FAERS Safety Report 7805233-X (Version None)
Quarter: 2011Q4

REPORT INFORMATION
  Report Type: 
  Country: None (occurrence: None)
  Receive Date: 20111010
  Receipt Date: 20110927
  Transmission Date: 20120403
  Serious: Yes (Other)
  Sender: FDA-Public Use
  Company Number: GB-ELI_LILLY_AND_COMPANY-GB201109000356

PATIENT
  Age: 26 Year
  Sex: Male

DRUGS (7)
  1. QUETIAPINE [Concomitant]
     Indication: DEPRESSION
     Dosage: 150 MG, UNK
  2. FLUOXETINE [Suspect]
     Dosage: 40 MG, QD
  3. FLUOXETINE [Suspect]
     Dosage: 40 MG, QD
  4. SERTRALINE HYDROCHLORIDE [Concomitant]
  5. FLUOXETINE [Suspect]
     Dosage: 80 MG, QD
  6. FLUOXETINE [Suspect]
     Dosage: 60 MG, QD
  7. FLUOXETINE [Suspect]
     Indication: DEPRESSION
     Dosage: 20 MG, QD

REACTIONS (1)
  - PSYCHOTIC DISORDER [None]
